FAERS Safety Report 4621447-4 (Version None)
Quarter: 2005Q2

REPORT INFORMATION
  Report Type: 
  Country: None (occurrence: None)
  Receive Date: 20050317
  Receipt Date: 20050122
  Transmission Date: 20051028
  Serious: Yes (Hospitalization)
  Sender: FDA-Public Use
  Company Number: 2004092417

PATIENT
  Age: 71 Year
  Sex: Male

DRUGS (8)
  1. VFEND [Suspect]
     Indication: BRONCHOPULMONARY ASPERGILLOSIS
     Dosage: 400 MG (200 MG, 2 IN 1 D), ORAL
     Route: 048
     Dates: start: 20041014
  2. GLIPIZIDE [Concomitant]
  3. PREDNISONE [Concomitant]
  4. FAMOTIDINE [Concomitant]
  5. TOLTERODINE TARTRATE [Concomitant]
  6. DILTIAZEM [Concomitant]
  7. DIGOXIN [Concomitant]
  8. FORMOTEROL (FORMOTEROL) [Concomitant]

REACTIONS (1)
  - DIABETES INSIPIDUS [None]
